FAERS Safety Report 13617597 (Version 1)
Quarter: 2017Q2

REPORT INFORMATION
  Report Type: Spontaneous
  Country: US (occurrence: US)
  Receive Date: 20170606
  Receipt Date: 20170606
  Transmission Date: 20170830
  Serious: No
  Sender: FDA-Public Use
  Company Number: US-SA-2017SA047508

PATIENT
  Age: 75 Year
  Sex: Female

DRUGS (4)
  1. NOVOLOG [Concomitant]
     Active Substance: INSULIN ASPART
  2. HUMALOG [Concomitant]
     Active Substance: INSULIN LISPRO
  3. SOLOSTAR [Concomitant]
     Active Substance: DEVICE
     Indication: TYPE 2 DIABETES MELLITUS
     Dates: start: 201612
  4. LANTUS SOLOSTAR [Suspect]
     Active Substance: INSULIN GLARGINE
     Indication: TYPE 2 DIABETES MELLITUS
     Dosage: DOSE:70 UNIT(S)
     Route: 065
     Dates: start: 201612

REACTIONS (10)
  - Grip strength decreased [Unknown]
  - Memory impairment [Unknown]
  - Visual impairment [Unknown]
  - Arthritis [Unknown]
  - Tremor [Unknown]
  - Injection site bruising [Unknown]
  - Product use issue [Unknown]
  - Injection site pain [Unknown]
  - Malaise [Unknown]
  - Blood glucose increased [Unknown]
